FAERS Safety Report 13971847 (Version 1)
Quarter: 2017Q3

REPORT INFORMATION
  Report Type: Spontaneous
  Country: US (occurrence: US)
  Receive Date: 20170914
  Receipt Date: 20170914
  Transmission Date: 20171128
  Serious: No
  Sender: FDA-Public Use
  Company Number: US-ASTELLAS-2016US036278

PATIENT
  Sex: Male

DRUGS (1)
  1. XTANDI [Suspect]
     Active Substance: ENZALUTAMIDE
     Indication: PROSTATE CANCER METASTATIC
     Dosage: 4 PILLS (DF), ONCE DAILY
     Route: 065
     Dates: start: 201608

REACTIONS (3)
  - Nausea [Unknown]
  - Back pain [Unknown]
  - Dizziness postural [Unknown]
